FAERS Safety Report 9585428 (Version 1)
Quarter: 2013Q4

REPORT INFORMATION
  Report Type: Spontaneous
  Country: US (occurrence: US)
  Receive Date: 20131002
  Receipt Date: 20131002
  Transmission Date: 20140711
  Serious: Yes (Other)
  Sender: FDA-Public Use
  Company Number: US-JNJFOC-20130912625

PATIENT
  Sex: Male

DRUGS (1)
  1. NEOSPORIN UNSPECIFIED [Suspect]
     Indication: LACERATION
     Dosage: LESS THAN A DIME SIZE.
     Route: 065

REACTIONS (4)
  - Eye infection [Recovered/Resolved]
  - Eye pruritus [Recovered/Resolved]
  - Eye discharge [Recovered/Resolved]
  - Eye irritation [Recovered/Resolved]
